FAERS Safety Report 4596723-4 (Version None)
Quarter: 2005Q1

REPORT INFORMATION
  Report Type: 
  Country: None (occurrence: None)
  Receive Date: 20050302
  Receipt Date: 20050202
  Transmission Date: 20050727
  Serious: Yes (Hospitalization)
  Sender: FDA-Public Use
  Company Number: JP-GLAXOSMITHKLINE-B0369818A

PATIENT
  Age: 36 Year
  Sex: Male
  Weight: 55 kg

DRUGS (5)
  1. ZEFIX [Suspect]
     Indication: HEPATITIS B
     Dosage: 100MG PER DAY
     Route: 048
     Dates: start: 20020101
  2. RENAGEL [Suspect]
     Dosage: 750MG THREE TIMES PER DAY
     Route: 048
  3. TANKARU [Concomitant]
     Route: 048
  4. LASIX [Concomitant]
     Route: 048
  5. ARGAMATE [Concomitant]
     Route: 048

REACTIONS (1)
  - ILEUS [None]
